FAERS Safety Report 4487621-5 (Version None)
Quarter: 2004Q4

REPORT INFORMATION
  Report Type: 
  Country: None (occurrence: None)
  Receive Date: 20041027
  Receipt Date: 20041027
  Transmission Date: 20050328
  Serious: Yes (Hospitalization)
  Sender: FDA-Public Use
  Company Number: None

PATIENT
  Age: 43 Year
  Sex: Female
  Weight: 94.8018 kg

DRUGS (2)
  1. RISPERIDONE [Suspect]
     Indication: SCHIZOPHRENIA
     Dosage: 4 MG QD ORAL
     Route: 048
     Dates: start: 20040504, end: 20040831
  2. QUETIAPINE 200MG [Suspect]
     Indication: SCHIZOPHRENIA
     Dosage: 400 MG QHS ORAL
     Route: 048
     Dates: start: 20030819, end: 20040831

REACTIONS (4)
  - ABDOMINAL PAIN [None]
  - BLOOD GLUCOSE INCREASED [None]
  - NAUSEA [None]
  - WEIGHT INCREASED [None]
